FAERS Safety Report 4547380-4 (Version None)
Quarter: 2005Q1

REPORT INFORMATION
  Report Type: 
  Country: None (occurrence: None)
  Receive Date: 20050107
  Receipt Date: 20041108
  Transmission Date: 20050727
  Serious: Yes (Hospitalization)
  Sender: FDA-Public Use
  Company Number: DE-ROCHE-385836

PATIENT
  Age: 62 Year
  Sex: Male

DRUGS (7)
  1. VALIUM [Suspect]
     Indication: DRUG USE FOR UNKNOWN INDICATION
     Route: 048
     Dates: start: 20031210, end: 20031211
  2. VALIUM [Suspect]
     Route: 048
     Dates: start: 20031212, end: 20031217
  3. VALIUM [Suspect]
     Route: 048
     Dates: start: 20031218, end: 20031221
  4. TAXILAN [Suspect]
     Indication: DRUG USE FOR UNKNOWN INDICATION
     Route: 048
     Dates: start: 20031212, end: 20031221
  5. TAXILAN [Suspect]
     Route: 048
     Dates: start: 20040121
  6. HALDOL [Suspect]
     Indication: DRUG USE FOR UNKNOWN INDICATION
     Route: 048
     Dates: start: 20031209, end: 20031221
  7. AKINETON [Concomitant]
     Route: 048
     Dates: start: 20031212, end: 20031221

REACTIONS (3)
  - DEPRESSED LEVEL OF CONSCIOUSNESS [None]
  - METABOLIC DISORDER [None]
  - STUPOR [None]
